FAERS Safety Report 6669610-5 (Version None)
Quarter: 2010Q2

REPORT INFORMATION
  Report Type: 
  Country: None (occurrence: None)
  Receive Date: 20100406
  Receipt Date: 20100119
  Transmission Date: 20101027
  Serious: Yes (Hospitalization)
  Sender: FDA-Public Use
  Company Number: NL-MYLANLABS-2010S1000866

PATIENT
  Age: 2 Day
  Sex: Male
  Weight: 3 kg

DRUGS (6)
  1. FENTANYL-100 [Suspect]
     Indication: ANAESTHESIA
  2. FENTANYL-100 [Suspect]
     Route: 040
  3. MORPHINE [Suspect]
     Indication: POSTOPERATIVE ANALGESIA
     Route: 042
  4. THIOPENTAL SODIUM [Concomitant]
     Indication: ANAESTHESIA
  5. CISATRACURIUM BESILATE [Concomitant]
     Indication: ANAESTHESIA
  6. ISOFLURANE [Concomitant]
     Indication: ANAESTHESIA

REACTIONS (2)
  - LARYNGOSPASM [None]
  - MUSCLE RIGIDITY [None]
